FAERS Safety Report 9696163 (Version 1)
Quarter: 2013Q4

REPORT INFORMATION
  Report Type: Spontaneous
  Country: DK (occurrence: DK)
  Receive Date: 20131119
  Receipt Date: 20131119
  Transmission Date: 20140711
  Serious: Yes (Hospitalization)
  Sender: FDA-Public Use
  Company Number: DK-WATSON-2013-21267

PATIENT
  Age: 47 Year
  Sex: Male

DRUGS (1)
  1. AMLODIPIN ACTAVIS [Suspect]
     Indication: HYPERTENSION
     Dosage: 10 MG, DAILY
     Route: 048
     Dates: end: 20130210

REACTIONS (4)
  - Pancreatitis acute [Recovering/Resolving]
  - Abdominal pain [Unknown]
  - Pseudocyst [Unknown]
  - Venous thrombosis [Unknown]
